FAERS Safety Report 20175935 (Version 1)
Quarter: 2021Q4

REPORT INFORMATION
  Report Type: Spontaneous
  Country: US (occurrence: US)
  Receive Date: 20211213
  Receipt Date: 20211213
  Transmission Date: 20220303
  Serious: Yes (Hospitalization, Other)
  Sender: FDA-Public Use
  Company Number: US-INTRA-CELLULAR THERAPIES, INC.-2021ICT00580

PATIENT
  Age: 4 Decade
  Sex: Female

DRUGS (3)
  1. CAPLYTA [Suspect]
     Active Substance: LUMATEPERONE
     Indication: Schizoaffective disorder
     Dosage: 42 MG, 1X/DAY
     Route: 048
  2. VRAYLAR [Concomitant]
     Active Substance: CARIPRAZINE
  3. POSSIBLE UNSPECIFIED MEDICATION [Concomitant]

REACTIONS (2)
  - Catatonia [Unknown]
  - Off label use [Recovered/Resolved]
